FAERS Safety Report 4720530-2 (Version None)
Quarter: 2005Q3

REPORT INFORMATION
  Report Type: 
  Country: None (occurrence: None)
  Receive Date: 20050719
  Receipt Date: 20050706
  Transmission Date: 20060218
  Serious: Yes (Other)
  Sender: FDA-Public Use
  Company Number: 2005098422

PATIENT
  Sex: Female
  Weight: 89.3586 kg

DRUGS (20)
  1. ZOLOFT [Suspect]
     Indication: DIVORCED
     Dates: start: 19730101
  2. PROCARDIA XL [Suspect]
     Indication: BLOOD PRESSURE
     Dosage: (30 MG), ORAL
     Route: 048
  3. DETROL LA [Suspect]
     Indication: URINARY INCONTINENCE
  4. LIPITOR [Suspect]
     Indication: BLOOD CHOLESTEROL INCREASED
     Dosage: 20 MG (20 MG, 1 IN 1 D), ORAL
     Route: 048
     Dates: start: 20050706
  5. METOPROLOL TARTRATE [Suspect]
     Indication: HYPERTENSION
  6. ALTACE [Suspect]
     Indication: HYPERTENSION
  7. ACTONEL [Concomitant]
  8. DIAGNOSTIC AGENTS (DIAGNOSTIC AGENTS) [Concomitant]
  9. NOVOLIN (INSULIN HUMAN INJECTION, ISOPHANE) [Concomitant]
  10. INSULIN, REGULAR (INSULIN) [Concomitant]
  11. NPH INSULIN [Concomitant]
  12. BENADRYL [Concomitant]
  13. LORATADINE [Concomitant]
  14. METFORMIN HCL [Concomitant]
  15. CATAPRES-TTS-1 [Concomitant]
  16. CLONAZEPAM [Concomitant]
  17. AMBIEN [Concomitant]
  18. CENTRUM (MINERALS NOS, VITAMINS NOS) [Concomitant]
  19. OSCAL (CALCIUM CARBONATE) [Concomitant]
  20. PROTONIX [Concomitant]

REACTIONS (8)
  - BLADDER DISORDER [None]
  - BLOOD CHOLESTEROL INCREASED [None]
  - BLOOD GLUCOSE INCREASED [None]
  - BLOOD PRESSURE INCREASED [None]
  - BREAST CANCER [None]
  - CARDIAC DISORDER [None]
  - HEADACHE [None]
  - LOWER RESPIRATORY TRACT INFECTION [None]
